FAERS Safety Report 9290978 (Version 2)
Quarter: 2014Q1

REPORT INFORMATION
  Report Type: Spontaneous
  Country: GB (occurrence: GB)
  Receive Date: 20130515
  Receipt Date: 20140310
  Transmission Date: 20141002
  Serious: Yes (Hospitalization)
  Sender: FDA-Public Use
  Company Number: GB-ACTAVIS-2013-07943

PATIENT
  Age: 49 Year
  Sex: Female

DRUGS (17)
  1. ACETYLSALICYLIC ACID [Suspect]
     Indication: PRODUCT USED FOR UNKNOWN INDICATION
     Dosage: UNKNOWN
     Route: 048
  2. BISOPROLOL (UNKNOWN) [Suspect]
     Indication: PRODUCT USED FOR UNKNOWN INDICATION
     Dosage: 10MG X 56
     Route: 048
  3. BISOPROLOL (UNKNOWN) [Suspect]
     Dosage: UNK
     Route: 065
     Dates: end: 20140206
  4. CLOPIDOGREL (UNKNOWN) [Suspect]
     Indication: PRODUCT USED FOR UNKNOWN INDICATION
     Dosage: 75MG X 28
     Route: 048
  5. CLOPIDOGREL (UNKNOWN) [Suspect]
     Dosage: UNK
     Route: 065
     Dates: end: 20140206
  6. FLUOXETINE HYDROCHLORIDE (UNKNOWN) [Suspect]
     Indication: PRODUCT USED FOR UNKNOWN INDICATION
     Dosage: 20MG X 56
     Route: 048
     Dates: start: 20130124
  7. FLUOXETINE HYDROCHLORIDE (UNKNOWN) [Suspect]
     Dosage: UNK
     Route: 065
     Dates: end: 20140206
  8. FUROSEMIDE (UNKNOWN) [Suspect]
     Indication: PRODUCT USED FOR UNKNOWN INDICATION
     Dosage: 40MG X 28
     Route: 048
  9. IBUPROFEN (UNKNOWN) [Suspect]
     Indication: PRODUCT USED FOR UNKNOWN INDICATION
     Dosage: 200MG X 24
     Route: 048
  10. OLANZAPINE (UNKNOWN) [Suspect]
     Indication: PRODUCT USED FOR UNKNOWN INDICATION
     Dosage: UNK
     Route: 065
     Dates: end: 20140206
  11. PARACETAMOL (UNKNOWN) [Suspect]
     Indication: PRODUCT USED FOR UNKNOWN INDICATION
     Dosage: 500 MG X 16
     Route: 048
  12. RAMIPRIL (UNKNOWN) [Suspect]
     Indication: PRODUCT USED FOR UNKNOWN INDICATION
     Dosage: 2.5MG X 56
     Route: 048
  13. RAMIPRIL (UNKNOWN) [Suspect]
     Dosage: UNK
     Route: 065
     Dates: end: 20140206
  14. ZAPONEX [Suspect]
     Indication: SCHIZOPHRENIA
     Dosage: UNKNOWN
     Route: 048
     Dates: start: 20041014, end: 20130129
  15. ZAPONEX [Suspect]
     Dosage: UNKNOWN
     Route: 048
     Dates: start: 20130304, end: 20140206
  16. GAVISCON                           /00237601/ [Concomitant]
     Indication: DYSPEPSIA
     Dosage: 10 ML, AS NECESSARY
     Route: 048
  17. LANSOPRAZOLE [Concomitant]
     Indication: DYSPEPSIA
     Dosage: 30 MG, DAILY
     Route: 048

REACTIONS (9)
  - Coma scale abnormal [Unknown]
  - Renal failure acute [Recovered/Resolved]
  - Alanine aminotransferase increased [Recovered/Resolved]
  - Intentional overdose [Unknown]
  - Treatment noncompliance [Recovered/Resolved]
  - Faecal incontinence [Unknown]
  - Agitation [Unknown]
  - Confusional state [Unknown]
  - Hypercholesterolaemia [Not Recovered/Not Resolved]
